FAERS Safety Report 11788322 (Version 5)
Quarter: 2016Q1

REPORT INFORMATION
  Report Type: Report from Study
  Country: CA (occurrence: CA)
  Receive Date: 20151201
  Receipt Date: 20160217
  Transmission Date: 20160525
  Serious: Yes (Hospitalization)
  Sender: FDA-Public Use
  Company Number: CA-ROCHE-1667141

PATIENT
  Age: 50 Year
  Sex: Female
  Weight: 60.5 kg

DRUGS (14)
  1. DOXORUBICIN [Suspect]
     Active Substance: DOXORUBICIN
     Indication: B-CELL LYMPHOMA
     Dosage: MOST RECENT DOSE PRIOR TO THE EVENT ON 17 NOV 2015, ?DOSE OF LAST DOXORUBICIN ADMINISTERED 85.5 (UNI
     Route: 042
     Dates: start: 20150918
  2. VINCRISTINE [Suspect]
     Active Substance: VINCRISTINE
     Indication: B-CELL LYMPHOMA
     Dosage: MOST RECENT DOSE PRIOR TO THE EVENT ON 17/NOV/2015, ?DOSE OF LAST VINCRISTINE ADMINISTERED 2 (UNIT N
     Route: 042
     Dates: start: 20150918
  3. DEXILANT [Concomitant]
     Active Substance: DEXLANSOPRAZOLE
     Indication: ABDOMINAL PAIN
     Route: 065
     Dates: start: 20150807, end: 20151122
  4. RED BLOOD CELLS [Concomitant]
     Active Substance: HUMAN RED BLOOD CELL
     Indication: ANAEMIA
     Route: 065
     Dates: start: 20151120, end: 20151120
  5. CYCLOPHOSPHAMIDE. [Suspect]
     Active Substance: CYCLOPHOSPHAMIDE
     Indication: B-CELL LYMPHOMA
     Dosage: MOST RECENT DOSE PRIOR TO THE EVENT ON 17/NOV/2015.?DOSE OF LAST CYCLOPHOSPHAMIDE ADMINISTERED 1283
     Route: 042
     Dates: start: 20150918
  6. GDC-0199 (BCL-2 SELECTIVE INHIBITOR) [Suspect]
     Active Substance: VENETOCLAX
     Indication: B-CELL LYMPHOMA
     Dosage: DOSE OF LAST GDC-0199 ADMINISTERED - 800 (UNIT NOT REPORTED)?MOST RECENT DOSE PRIOR TO THE EVENT ON
     Route: 048
     Dates: start: 20150921
  7. DOMPERIDONE [Concomitant]
     Active Substance: DOMPERIDONE
     Indication: ABDOMINAL PAIN
     Route: 065
     Dates: start: 201506, end: 20151101
  8. RED BLOOD CELLS [Concomitant]
     Active Substance: HUMAN RED BLOOD CELL
     Indication: ANAEMIA
     Route: 065
     Dates: start: 20151024, end: 20151024
  9. ALLOPURINOL. [Concomitant]
     Active Substance: ALLOPURINOL
     Indication: PROPHYLAXIS
     Route: 065
     Dates: start: 20150917
  10. PREDNISONE. [Suspect]
     Active Substance: PREDNISONE
     Indication: B-CELL LYMPHOMA
     Dosage: MOST RECENT DOSE PRIOR TO THE EVENT ON 22/NOV/2015, ?DOSE OF LAST PREDNISONE ADMINISTERED 100 (UNIT
     Route: 042
     Dates: start: 20150917
  11. CODEINE [Concomitant]
     Active Substance: CODEINE
     Indication: COUGH
     Route: 065
     Dates: start: 20151106, end: 20151120
  12. GDC-0199 (BCL-2 SELECTIVE INHIBITOR) [Suspect]
     Active Substance: VENETOCLAX
     Route: 048
     Dates: start: 20151222
  13. OBINUTUZUMAB [Suspect]
     Active Substance: OBINUTUZUMAB
     Indication: B-CELL LYMPHOMA
     Dosage: MOST RECENT DOSE PRIOR TO THE EVENT ON 17/NOV/2015.?ADMINISTERED ONCE WEEKLY FOR 3 WEEKS (CYCLE 1) T
     Route: 042
     Dates: start: 20150917
  14. FISH OIL [Concomitant]
     Active Substance: FISH OIL
     Dosage: SUPPLEMENT
     Route: 065
     Dates: start: 2012

REACTIONS (1)
  - Gastric ulcer perforation [Recovered/Resolved]

NARRATIVE: CASE EVENT DATE: 20151122
